FAERS Safety Report 7158357-7 (Version None)
Quarter: 2010Q4

REPORT INFORMATION
  Report Type: 
  Country: None (occurrence: None)
  Receive Date: 20101214
  Receipt Date: 20100528
  Transmission Date: 20110411
  Serious: No
  Sender: FDA-Public Use
  Company Number: US-PFIZER INC-2010067789

PATIENT
  Sex: Female
  Weight: 65.76 kg

DRUGS (4)
  1. ARTHROTEC [Suspect]
     Indication: ARTHRALGIA
     Dosage: 75MG/200 MCG, 2X/DAY
     Route: 048
     Dates: start: 20100526
  2. IBUPROFEN [Suspect]
     Indication: ARTHRALGIA
     Dosage: UNK
  3. TRAMADOL [Suspect]
     Indication: ARTHRALGIA
     Dosage: UNK
  4. DIOVAN HCT [Concomitant]
     Indication: HYPERTENSION
     Dosage: 160/25 MG, DAILY
     Route: 048

REACTIONS (3)
  - DRUG INEFFECTIVE [None]
  - DYSPHAGIA [None]
  - ODYNOPHAGIA [None]
